FAERS Safety Report 5134312-3 (Version None)
Quarter: 2006Q4

REPORT INFORMATION
  Report Type: 
  Country: None (occurrence: None)
  Receive Date: 20060831
  Receipt Date: 20060621
  Transmission Date: 20070319
  Serious: No
  Sender: FDA-Public Use
  Company Number: 2006-BP-06103BP

PATIENT
  Age: 58 Year
  Sex: Male
  Weight: 72.27 kg

DRUGS (1)
  1. SPIRIVA [Suspect]
     Indication: ASTHMA
     Dosage: (18 MCG)

REACTIONS (2)
  - NOCTURIA [None]
  - URINARY HESITATION [None]
